FAERS Safety Report 12905874 (Version 1)
Quarter: 2016Q4

REPORT INFORMATION
  Report Type: Spontaneous
  Country: US (occurrence: US)
  Receive Date: 20161102
  Receipt Date: 20161102
  Transmission Date: 20170207
  Serious: No
  Sender: FDA-Public Use
  Company Number: None

PATIENT
  Age: 85 Year
  Sex: Female
  Weight: 69.46 kg

DRUGS (9)
  1. VITAMIN B12 [Concomitant]
     Active Substance: CYANOCOBALAMIN
  2. CLONIDINE PACH [Concomitant]
  3. BRILINTA [Concomitant]
     Active Substance: TICAGRELOR
  4. CLONIDINE TRANSDERMAL SYSTEM [Suspect]
     Active Substance: CLONIDINE
     Indication: HYPERTENSION
     Route: 061
     Dates: start: 20140101
  5. LABITALOL [Concomitant]
  6. VITAMIN D [Concomitant]
     Active Substance: CHOLECALCIFEROL
  7. LEVOTHYROXINE. [Concomitant]
     Active Substance: LEVOTHYROXINE
  8. XANAX [Concomitant]
     Active Substance: ALPRAZOLAM
  9. CLONIDINE PILL [Concomitant]

REACTIONS (2)
  - Pollakiuria [None]
  - Sleep disorder [None]

NARRATIVE: CASE EVENT DATE: 20140101
